FAERS Safety Report 17134625 (Version 3)
Quarter: 2020Q1

REPORT INFORMATION
  Report Type: Spontaneous
  Country: DE (occurrence: DE)
  Receive Date: 20191210
  Receipt Date: 20200319
  Transmission Date: 20200409
  Serious: Yes (Death, Other)
  Sender: FDA-Public Use
  Company Number: NVSC2019DE061463

PATIENT
  Age: 66 Year
  Sex: Male

DRUGS (8)
  1. PEMETREXED DISODIUM [Suspect]
     Active Substance: PEMETREXED DISODIUM
     Dosage: UNK (MAINTENANCE THERAPY; 19 CYCLES)
     Route: 065
     Dates: start: 201511, end: 201612
  2. CISPLATIN. [Suspect]
     Active Substance: CISPLATIN
     Indication: LUNG ADENOCARCINOMA
     Dosage: UNK, CYCLICAL
     Route: 065
     Dates: start: 201506, end: 201511
  3. DOCETAXEL. [Suspect]
     Active Substance: DOCETAXEL
     Indication: LUNG ADENOCARCINOMA
     Dosage: 75 MG/M2, Q3W (D1; 3RD LINE, Q3W)
     Route: 065
     Dates: start: 201901
  4. PEMETREXED DISODIUM [Suspect]
     Active Substance: PEMETREXED DISODIUM
     Indication: LUNG ADENOCARCINOMA
     Dosage: 1ST LINE PLUS MAINTENANCE; 6 CYCLES; CYCLICAL
     Route: 065
     Dates: start: 201507, end: 201511
  5. NINTEDANIB [Suspect]
     Active Substance: NINTEDANIB
     Indication: LUNG ADENOCARCINOMA
     Dosage: 400 MG, QD (ONCE IN THE MORNING AND ONCE IN THE EVENING, 3RD LINE)
     Route: 065
     Dates: start: 201901
  6. CISPLATIN. [Suspect]
     Active Substance: CISPLATIN
     Dosage: UNK, CYCLIC
     Route: 065
     Dates: start: 201507, end: 201511
  7. KEYTRUDA [Suspect]
     Active Substance: PEMBROLIZUMAB
     Indication: LUNG ADENOCARCINOMA
     Dosage: 2 UNK
     Route: 065
     Dates: start: 201701, end: 201901
  8. PEMBROLIZUMAB. [Suspect]
     Active Substance: PEMBROLIZUMAB
     Indication: LUNG ADENOCARCINOMA
     Dosage: 2MG/KG BODY WEIGHT, 2ND LINE, 34 CYCLES
     Route: 065
     Dates: start: 201701, end: 201901

REACTIONS (3)
  - Arteriosclerosis [Fatal]
  - Malignant neoplasm progression [Unknown]
  - Coronary artery disease [Fatal]

NARRATIVE: CASE EVENT DATE: 201901
